FAERS Safety Report 10583816 (Version 1)
Quarter: 2014Q4

REPORT INFORMATION
  Report Type: Spontaneous
  Country: FR (occurrence: None)
  Receive Date: 20141112
  Receipt Date: 20141112
  Transmission Date: 20150529
  Serious: Yes (Hospitalization)
  Sender: FDA-Public Use
  Company Number: IMP_08086_2014

PATIENT
  Age: 81 Year
  Sex: Female

DRUGS (2)
  1. AGENTS ACTING ON THE RENIN-ANGIOTENSIN SYSTEM (UNKNOWN) [Concomitant]
  2. METFORMIN HCL (METFORMIN HCL) (NOT SPECIFIED) [Suspect]
     Active Substance: METFORMIN HYDROCHLORIDE
     Indication: TYPE 2 DIABETES MELLITUS
     Dosage: TOTAL DAILY DOSE

REACTIONS (7)
  - Respiratory rate increased [None]
  - Multi-organ failure [None]
  - Heart rate increased [None]
  - Cardiovascular insufficiency [None]
  - Renal impairment [None]
  - Continuous haemodiafiltration [None]
  - Lactic acidosis [None]
